FAERS Safety Report 9678305 (Version 2)
Quarter: 2013Q4

REPORT INFORMATION
  Report Type: Spontaneous
  Country: AU (occurrence: AU)
  Receive Date: 20131108
  Receipt Date: 20131202
  Transmission Date: 20140711
  Serious: Yes (Other)
  Sender: FDA-Public Use
  Company Number: AU-PFIZER INC-2013313979

PATIENT
  Sex: Female

DRUGS (2)
  1. MORPHINE SULFATE [Suspect]
     Dosage: UNK
  2. LIORESAL [Suspect]
     Dosage: 400 UG, DAILY
     Route: 037

REACTIONS (7)
  - Spinal cord compression [Recovering/Resolving]
  - Device dislocation [Recovering/Resolving]
  - Gait disturbance [Recovering/Resolving]
  - Respiratory disorder [Recovering/Resolving]
  - Performance status decreased [Recovering/Resolving]
  - Abasia [Recovering/Resolving]
  - Muscle spasticity [Recovering/Resolving]
